FAERS Safety Report 7017644-3 (Version None)
Quarter: 2010Q3

REPORT INFORMATION
  Report Type: 
  Country: None (occurrence: None)
  Receive Date: 20100928
  Receipt Date: 20100917
  Transmission Date: 20110219
  Serious: Yes (Other)
  Sender: FDA-Public Use
  Company Number: US-PFIZER INC-2010088757

PATIENT
  Sex: Female
  Weight: 76.19 kg

DRUGS (4)
  1. GEODON [Suspect]
     Indication: DEPRESSION
     Dosage: 20 MG, 1X/DAY
     Route: 048
     Dates: start: 20070101
  2. GEODON [Suspect]
     Indication: BIPOLAR DISORDER
  3. VALTREX [Suspect]
     Indication: GENITAL HERPES
     Dosage: 500 MG, 2X/DAY
     Route: 048
  4. ZOLOFT [Concomitant]
     Dosage: 100 MG, DAILY

REACTIONS (4)
  - ANXIETY [None]
  - DISCOMFORT [None]
  - DYSPHAGIA [None]
  - OESOPHAGEAL STENOSIS [None]
